FAERS Safety Report 5849825-6 (Version None)
Quarter: 2008Q3

REPORT INFORMATION
  Report Type: 
  Country: None (occurrence: None)
  Receive Date: 20080819
  Receipt Date: 20080812
  Transmission Date: 20090109
  Serious: Yes (Hospitalization, Disabling, Other)
  Sender: FDA-Public Use
  Company Number: US-BAXTER-2008BH008557

PATIENT
  Sex: Male

DRUGS (2)
  1. HEPARIN SODIUM INJECTION [Suspect]
     Indication: AORTIC VALVE REPLACEMENT
     Dosage: DOSE UNIT:UNKNOWN
     Route: 065
     Dates: start: 20050215
  2. HEPARIN SODIUM INJECTION [Suspect]
     Indication: CORONARY ARTERY BYPASS
     Dosage: DOSE UNIT:UNKNOWN
     Route: 065
     Dates: start: 20050215

REACTIONS (1)
  - HEPARIN-INDUCED THROMBOCYTOPENIA [None]
